FAERS Safety Report 6759986-2 (Version None)
Quarter: 2010Q2

REPORT INFORMATION
  Report Type: 
  Country: None (occurrence: None)
  Receive Date: 20100604
  Receipt Date: 20100525
  Transmission Date: 20101027
  Serious: Yes (Other)
  Sender: FDA-Public Use
  Company Number: 2010PL000067

PATIENT
  Age: 69 Year
  Sex: Female

DRUGS (7)
  1. IMURAN [Suspect]
     Indication: ARTHRITIS
     Dosage: 50 MG TID PO
     Route: 048
     Dates: start: 19970101, end: 20100305
  2. HUMIRA [Suspect]
     Indication: RHEUMATOID ARTHRITIS
     Dosage: 40 MG QOW SC
     Route: 058
     Dates: start: 20020101, end: 20100201
  3. MICARDIS HCT [Concomitant]
  4. SERETIDE [Concomitant]
  5. PREGABALIN [Concomitant]
  6. TIOTROPIUM BROMIDE [Concomitant]
  7. MONTELUKAST [Concomitant]

REACTIONS (8)
  - COLLAPSE OF LUNG [None]
  - DISEASE RECURRENCE [None]
  - HYPERTENSION [None]
  - LUNG NEOPLASM MALIGNANT [None]
  - NEOPLASM SKIN [None]
  - NEURALGIA [None]
  - PROCEDURAL COMPLICATION [None]
  - RESPIRATORY TRACT INFECTION [None]
